FAERS Safety Report 24933257 (Version 1)
Quarter: 2025Q1

REPORT INFORMATION
  Report Type: Spontaneous
  Country: QA (occurrence: QA)
  Receive Date: 20250206
  Receipt Date: 20250206
  Transmission Date: 20250409
  Serious: No
  Sender: ALKEM
  Company Number: QA-ALKEM LABORATORIES LIMITED-QA-ALKEM-2024-17524

PATIENT
  Age: 39 Year
  Sex: Female

DRUGS (1)
  1. GABAPENTIN [Suspect]
     Active Substance: GABAPENTIN
     Indication: Pain
     Dosage: 300 MILLIGRAM, QD (10 DAYS BEFORE PRESENTATION)
     Route: 065

REACTIONS (2)
  - Chorea [Recovered/Resolved]
  - Dyskinesia [Recovered/Resolved]
